FAERS Safety Report 23337420 (Version 1)
Quarter: 2023Q4

REPORT INFORMATION
  Report Type: Report from Study
  Country: US (occurrence: US)
  Receive Date: 20231226
  Receipt Date: 20231226
  Transmission Date: 20240110
  Serious: Yes (Other)
  Sender: FDA-Public Use
  Company Number: US-GILEAD-2023-0652170

PATIENT
  Age: 90 Year
  Sex: Female

DRUGS (3)
  1. AMBRISENTAN [Suspect]
     Active Substance: AMBRISENTAN
     Indication: Pulmonary hypertension
     Dosage: 10 MG, QD
     Route: 065
  2. AMBRISENTAN [Suspect]
     Active Substance: AMBRISENTAN
     Dosage: 10 MG, QD
     Route: 065
     Dates: start: 20220513
  3. ADEMPAS [Concomitant]
     Active Substance: RIOCIGUAT

REACTIONS (9)
  - Rheumatoid arthritis [Unknown]
  - Dyspnoea exertional [Recovering/Resolving]
  - Cholelithiasis [Recovered/Resolved]
  - Back pain [Unknown]
  - Groin pain [Unknown]
  - Fatigue [Unknown]
  - Dizziness [Unknown]
  - Iron deficiency [Unknown]
  - Paraesthesia oral [Unknown]

NARRATIVE: CASE EVENT DATE: 20230101
